FAERS Safety Report 18622625 (Version 1)
Quarter: 2020Q4

REPORT INFORMATION
  Report Type: Spontaneous
  Country: SE (occurrence: SE)
  Receive Date: 20201216
  Receipt Date: 20201216
  Transmission Date: 20210114
  Serious: Yes (Death)
  Sender: FDA-Public Use
  Company Number: SE-TEVA-2020-SE-1857989

PATIENT
  Age: 65 Year
  Sex: Male

DRUGS (18)
  1. CAPECITABINE. [Suspect]
     Active Substance: CAPECITABINE
     Dates: start: 20200908, end: 20201011
  2. JANUVIA 100 MG FILMDRAGERAD TABLETT [Concomitant]
     Dosage: UNIT DOSE :  100 MG
     Dates: start: 20170908
  3. RAMIPRIL. [Concomitant]
     Active Substance: RAMIPRIL
     Dosage: UNIT DOSE :  10 MG
     Dates: start: 20170908
  4. OXALIPLATIN. [Suspect]
     Active Substance: OXALIPLATIN
     Dates: start: 20200908
  5. TROMBYL 75 MG TABLETT [Concomitant]
     Active Substance: ASPIRIN
     Dosage: UNIT DOSE : 75 MG
     Dates: start: 20170908
  6. ALVEDON 500 MG FILMDRAGERAD TABLETT [Concomitant]
     Active Substance: ACETAMINOPHEN
     Dosage: 2 TABLETS IF NEEDED 3 TIMES DAILY
     Dates: start: 20200812
  7. MINDIAB 5 MG TABLETT [Concomitant]
     Dosage: UNIT DOSE :  10 MG
     Dates: start: 20170908
  8. BETNOVAT 1 MG/ML KUTAN EMULSION [Concomitant]
     Dates: start: 20171129
  9. BRICANYL TURBUHALER 0,5 MG/DOS INHALATIONSPULVER [Concomitant]
     Dosage: 1 INHALATION IF NECESSARY
     Dates: start: 20190206
  10. ATORVASTATIN [Concomitant]
     Active Substance: ATORVASTATIN
     Dosage: UNIT DOSE : 20 MG
     Dates: start: 20180721
  11. LORATADINE. [Concomitant]
     Active Substance: LORATADINE
     Dosage: 1 TABLET IF NEEDED
     Dates: start: 20170907
  12. OMEPRAZOLE. [Concomitant]
     Active Substance: OMEPRAZOLE
     Dosage: UNIT DOSE :  40 MG
     Dates: start: 20170908
  13. HYDROCHLOROTHIAZIDE. [Concomitant]
     Active Substance: HYDROCHLOROTHIAZIDE
     Dosage: UNIT DOSE : 25 MG
     Dates: start: 20170908
  14. BETNOVAT 0,1 % KRAM [Concomitant]
     Dates: start: 20170929
  15. MINIDERM 20 % KRAM [Concomitant]
     Dates: start: 20170907
  16. BUFOMIX EASYHALER 160 MIKROGRAM/4,5 MIKROGRAM/INHALATION INHALATIONSPU [Concomitant]
     Dosage: 4 DOSAGE FORMS DAILY; INHALATIONS
     Dates: start: 20190206
  17. METFORMIN [Concomitant]
     Active Substance: METFORMIN HYDROCHLORIDE
     Dosage: UNIT DOSE : 2550 MG
     Dates: start: 20170907
  18. INOLAXOL [Concomitant]
     Active Substance: HERBALS\KARAYA GUM
     Dates: start: 20200924

REACTIONS (3)
  - Small intestinal haemorrhage [Fatal]
  - Gastrointestinal oedema [Fatal]
  - Gastrointestinal mucosal necrosis [Fatal]

NARRATIVE: CASE EVENT DATE: 202010
